FAERS Safety Report 20810115 (Version 1)
Quarter: 2022Q2

REPORT INFORMATION
  Report Type: Spontaneous
  Country: US (occurrence: US)
  Receive Date: 20220510
  Receipt Date: 20220510
  Transmission Date: 20220720
  Serious: No
  Sender: FDA-Public Use
  Company Number: US-OYSTER POINT PHARMA, INC.-2022OYS00126

PATIENT
  Age: 54 Year
  Sex: Female
  Weight: 43.991 kg

DRUGS (3)
  1. TYRVAYA [Suspect]
     Active Substance: VARENICLINE TARTRATE
     Indication: Dry eye
     Dosage: 1 SPRAY IN EACH SIDE, 2X/DAY
     Route: 045
     Dates: start: 202201, end: 202201
  2. TYRVAYA [Suspect]
     Active Substance: VARENICLINE TARTRATE
     Dosage: 1 SPRAY IN EACH SIDE, 2X/DAY
     Route: 045
     Dates: start: 20220210
  3. A LOT OF UNSPECIFIED PRODUCTS [Concomitant]

REACTIONS (3)
  - Rash pruritic [Recovered/Resolved]
  - Skin weeping [Recovered/Resolved]
  - Dry skin [Recovered/Resolved]

NARRATIVE: CASE EVENT DATE: 20220101
